FAERS Safety Report 8001474-X (Version None)
Quarter: 2011Q4

REPORT INFORMATION
  Report Type: 
  Country: None (occurrence: None)
  Receive Date: 20111222
  Receipt Date: 20111207
  Transmission Date: 20120403
  Serious: Yes (Death)
  Sender: FDA-Public Use
  Company Number: US-ROCHE-1020820

PATIENT

DRUGS (9)
  1. BENDAMUSTINE [Suspect]
     Route: 065
  2. METHOTREXATE [Suspect]
     Indication: MALIGNANT LYMPHOID NEOPLASM
     Route: 065
  3. MABTHERA [Suspect]
     Dosage: ON DAYS 6, 1, AND 8.
     Route: 065
  4. BENDAMUSTINE [Suspect]
     Route: 065
  5. MABTHERA [Suspect]
     Indication: MALIGNANT LYMPHOID NEOPLASM
     Dosage: ON DAY 13
     Route: 065
  6. TACROLIMUS [Suspect]
     Indication: MALIGNANT LYMPHOID NEOPLASM
     Route: 065
  7. BENDAMUSTINE [Suspect]
     Indication: MALIGNANT LYMPHOID NEOPLASM
     Dosage: ON DAYS 5 TO  3 PRIOR TO NONMYELOABLATIVE STEM CELL TRANSPLANTATION (NST)
     Route: 065
  8. FLUDARABINE PHOSPHATE [Suspect]
     Indication: MALIGNANT LYMPHOID NEOPLASM
     Route: 065
  9. BENDAMUSTINE [Suspect]
     Dosage: IN ESCLALATED DOSE
     Route: 065

REACTIONS (1)
  - FUNGAL INFECTION [None]
